FAERS Safety Report 6436803-1 (Version None)
Quarter: 2009Q4

REPORT INFORMATION
  Report Type: 
  Country: None (occurrence: None)
  Receive Date: 20091109
  Receipt Date: 20091026
  Transmission Date: 20100525
  Serious: Yes (Death)
  Sender: FDA-Public Use
  Company Number: KV200900661

PATIENT
  Age: 53 Year
  Sex: Female

DRUGS (2)
  1. ISOSORBIDE MONONITRATE [Suspect]
     Dosage: UNK, ORAL
     Route: 048
     Dates: start: 20030101, end: 20080101
  2. PLAVIX [Concomitant]

REACTIONS (9)
  - ABDOMINAL PAIN [None]
  - ASTHENIA [None]
  - FATIGUE [None]
  - HAEMATEMESIS [None]
  - HEADACHE [None]
  - MYOCARDIAL INFARCTION [None]
  - NAUSEA [None]
  - PAIN [None]
  - VOMITING [None]
